FAERS Safety Report 5926637-6 (Version None)
Quarter: 2008Q4

REPORT INFORMATION
  Report Type: 
  Country: None (occurrence: None)
  Receive Date: 20081022
  Receipt Date: 20081020
  Transmission Date: 20090506
  Serious: Yes (Hospitalization)
  Sender: FDA-Public Use
  Company Number: B0542749A

PATIENT
  Age: 96 Year
  Sex: Male

DRUGS (4)
  1. RYTMONORM [Suspect]
     Indication: DRUG USE FOR UNKNOWN INDICATION
     Dosage: 3UNIT PER DAY
     Route: 048
     Dates: start: 20080401, end: 20081004
  2. ENALAPRIL MALEATE [Concomitant]
     Indication: HYPERTENSION
     Dosage: 1UNIT PER DAY
     Route: 048
     Dates: start: 20070101, end: 20081004
  3. FUROSEMIDE [Concomitant]
     Indication: HYPERTENSION
     Dosage: 1UNIT PER DAY
     Route: 048
     Dates: start: 20070101, end: 20081004
  4. TELMISARTAN [Concomitant]
     Indication: HYPERTENSION
     Dosage: 1UNIT PER DAY
     Route: 048
     Dates: start: 20070101, end: 20081004

REACTIONS (2)
  - SYNCOPE [None]
  - TRIFASCICULAR BLOCK [None]
